FAERS Safety Report 18779795 (Version 2)
Quarter: 2021Q1

REPORT INFORMATION
  Report Type: Spontaneous
  Country: CO (occurrence: CO)
  Receive Date: 20210125
  Receipt Date: 20210203
  Transmission Date: 20210419
  Serious: Yes (Other)
  Sender: FDA-Public Use
  Company Number: CO-AMGEN-COLSP2020209899

PATIENT
  Age: 28 Year
  Sex: Male
  Weight: 54 kg

DRUGS (8)
  1. PREDNISOLONE. [Concomitant]
     Active Substance: PREDNISOLONE
     Indication: EPILEPSY
     Dosage: 5 MILLIGRAM, QD
     Route: 048
     Dates: start: 20201217
  2. MVASI [Suspect]
     Active Substance: BEVACIZUMAB-AWWB
     Indication: OLIGODENDROGLIOMA
     Dosage: 405 MILLIGRAM, QD
     Route: 042
     Dates: start: 20210115
  3. TEMOZOLOMIDE. [Concomitant]
     Active Substance: TEMOZOLOMIDE
  4. LACOSAMIDE. [Concomitant]
     Active Substance: LACOSAMIDE
     Indication: EPILEPSY
     Dosage: 100 MILLIGRAM, Q12H
     Route: 048
     Dates: start: 20201217
  5. MVASI [Suspect]
     Active Substance: BEVACIZUMAB-AWWB
     Indication: ASTROCYTOMA
  6. PHENYTOIN SODIUM. [Concomitant]
     Active Substance: PHENYTOIN SODIUM
     Indication: EPILEPSY
     Dosage: 100 MILLIGRAM, QD
     Route: 048
     Dates: start: 20201217
  7. PREDNISOLONE. [Concomitant]
     Active Substance: PREDNISOLONE
     Dosage: 5 MILLIGRAM, QD
     Route: 048
     Dates: start: 20210115
  8. MVASI [Suspect]
     Active Substance: BEVACIZUMAB-AWWB
     Indication: ANAPLASTIC ASTROCYTOMA
     Dosage: 400 MILLIGRAM, QD
     Route: 042
     Dates: start: 20201210

REACTIONS (2)
  - Off label use [Not Recovered/Not Resolved]
  - Pain in extremity [Recovering/Resolving]

NARRATIVE: CASE EVENT DATE: 20201218
